FAERS Safety Report 12798979 (Version 1)
Quarter: 2016Q3

REPORT INFORMATION
  Report Type: Report from Study
  Country: US (occurrence: US)
  Receive Date: 20160930
  Receipt Date: 20160930
  Transmission Date: 20161109
  Serious: Yes (Hospitalization, Other)
  Sender: FDA-Public Use
  Company Number: US-AMGEN-USASL2016130998

PATIENT
  Age: 88 Year
  Sex: Female

DRUGS (1)
  1. ENBREL [Suspect]
     Active Substance: ETANERCEPT
     Indication: RHEUMATOID ARTHRITIS
     Dosage: UNK UNK, QWK
     Route: 065

REACTIONS (16)
  - Gait disturbance [Unknown]
  - Fungal skin infection [Unknown]
  - Cardiac valve disease [Unknown]
  - Anaemia [Unknown]
  - Infection susceptibility increased [Unknown]
  - Dermatitis [Unknown]
  - Melanocytic naevus [Unknown]
  - Immunosuppression [Unknown]
  - Contusion [Not Recovered/Not Resolved]
  - Skin exfoliation [Recovered/Resolved]
  - Pain in extremity [Unknown]
  - Pneumonia [Unknown]
  - Feeling abnormal [Unknown]
  - Muscle spasms [Unknown]
  - Chronic obstructive pulmonary disease [Unknown]
  - Blood test abnormal [Unknown]

NARRATIVE: CASE EVENT DATE: 2016
